FAERS Safety Report 9519035 (Version 1)
Quarter: 2013Q3

REPORT INFORMATION
  Report Type: Spontaneous
  Country: US (occurrence: US)
  Receive Date: 20130912
  Receipt Date: 20130912
  Transmission Date: 20140515
  Serious: Yes (Other)
  Sender: FDA-Public Use
  Company Number: US-PFIZER INC-2013258653

PATIENT
  Age: 43 Year
  Sex: Female
  Weight: 78.46 kg

DRUGS (3)
  1. REVATIO [Suspect]
     Indication: PULMONARY HYPERTENSION
     Dosage: 20 MG, 3X/DAY
  2. LEVOTHYROXINE SODIUM [Concomitant]
     Indication: THYROID DISORDER
     Dosage: 200 UG, 1X/DAY
  3. DILTIAZEM [Concomitant]
     Indication: CARDIAC DISORDER
     Dosage: 30 MG, 1X/DAY

REACTIONS (2)
  - Breast cancer metastatic [Unknown]
  - Incorrect dose administered [Unknown]
